FAERS Safety Report 10753343 (Version 3)
Quarter: 2015Q1

REPORT INFORMATION
  Report Type: Spontaneous
  Country: JP (occurrence: None)
  Receive Date: 20150129
  Receipt Date: 20150220
  Transmission Date: 20150721
  Serious: Yes (Hospitalization)
  Sender: FDA-Public Use
  Company Number: 2015JP000770

PATIENT
  Age: 68 Year
  Sex: Female
  Weight: 49 kg

DRUGS (15)
  1. CETYLPYRIDINIUM CHLORIDE. [Concomitant]
     Active Substance: CETYLPYRIDINIUM CHLORIDE
  2. LASIX [Concomitant]
     Active Substance: FUROSEMIDE
  3. AZILVA (AZILSARTAN) [Concomitant]
  4. LOXONIN (LOXOPROFEN SODIUM) [Concomitant]
     Active Substance: LOXOPROFEN SODIUM
  5. HYTRACIN (TERAZOSIN HYDROCHLORIDE) [Concomitant]
  6. ISOPIT (ISOSORBIDE DINITRATE) [Concomitant]
  7. DILTIAZEM HYDROCHLORIDE (DILTIAZEM HYDROCHLORIDE) [Concomitant]
     Active Substance: DILTIAZEM HYDROCHLORIDE
  8. CRESTOR [Concomitant]
     Active Substance: ROSUVASTATIN CALCIUM
  9. REGPARA (CINACALCET HYDROCHLROIDE) [Concomitant]
  10. ZOLPIDEM TARTRATE (ZOLPIDEM TARTRATE) [Concomitant]
     Active Substance: ZOLPIDEM TARTRATE
  11. RIONA [Suspect]
     Active Substance: FERRIC CITRATE ANHYDROUS
     Indication: HYPERPHOSPHATAEMIA
     Route: 048
     Dates: start: 20140826, end: 201410
  12. LENDORMIN (BROTIZOLAM) [Concomitant]
  13. NESP (DARBEPOETIN ALFA) [Concomitant]
  14. CONIEL (BENIDIPINE HYDROCHLORIDE) [Concomitant]
  15. DIAZEPAM (DIAZEPAM) [Concomitant]
     Active Substance: DIAZEPAM

REACTIONS (5)
  - Asthenia [None]
  - Thrombocytopenia [None]
  - Liver disorder [None]
  - Muscular weakness [None]
  - Liver function test abnormal [None]

NARRATIVE: CASE EVENT DATE: 20141113
